FAERS Safety Report 18975058 (Version 2)
Quarter: 2021Q1

REPORT INFORMATION
  Report Type: Report from Study
  Country: None (occurrence: US)
  Receive Date: 20210306
  Receipt Date: 20210309
  Transmission Date: 20210420
  Serious: Yes (Hospitalization, Other)
  Sender: FDA-Public Use
  Company Number: US-ABBVIE-21K-163-3797780-00

PATIENT
  Age: 49 Year
  Sex: Male

DRUGS (2)
  1. HUMIRA [Suspect]
     Active Substance: ADALIMUMAB
     Indication: PRODUCT USED FOR UNKNOWN INDICATION
     Route: 058
  2. HUMIRA [Suspect]
     Active Substance: ADALIMUMAB
     Indication: PSORIATIC ARTHROPATHY
     Dosage: CITRATE FREE
     Route: 058

REACTIONS (12)
  - Fall [Unknown]
  - Myocardial infarction [Recovered/Resolved]
  - Spinal fracture [Recovered/Resolved]
  - Rib fracture [Unknown]
  - Psoriatic arthropathy [Not Recovered/Not Resolved]
  - Injection site pain [Recovered/Resolved]
  - Spinal fracture [Unknown]
  - Injection site swelling [Recovered/Resolved]
  - Fractured coccyx [Unknown]
  - Septic shock [Unknown]
  - Finger deformity [Unknown]
  - Sepsis [Unknown]

NARRATIVE: CASE EVENT DATE: 201612
